FAERS Safety Report 22245980 (Version 3)
Quarter: 2023Q2

REPORT INFORMATION
  Report Type: Report from Study
  Country: US (occurrence: US)
  Receive Date: 20230424
  Receipt Date: 20230606
  Transmission Date: 20230721
  Serious: Yes (Hospitalization, Other)
  Sender: FDA-Public Use
  Company Number: US-JNJFOC-20230431631

PATIENT
  Age: 80 Year
  Sex: Female

DRUGS (9)
  1. SELEXIPAG [Suspect]
     Active Substance: SELEXIPAG
     Indication: Pulmonary arterial hypertension
     Route: 048
     Dates: start: 202303
  2. SELEXIPAG [Suspect]
     Active Substance: SELEXIPAG
     Route: 048
     Dates: start: 20230313
  3. SELEXIPAG [Suspect]
     Active Substance: SELEXIPAG
     Dosage: { 1 MONTH FROM MARCH TO APRIL
     Route: 048
     Dates: start: 202303, end: 202304
  4. OXYGEN [Concomitant]
     Active Substance: OXYGEN
  5. EUTHYROX [Concomitant]
     Active Substance: LEVOTHYROXINE SODIUM
     Route: 048
  6. ATORVASTATIN [Concomitant]
     Active Substance: ATORVASTATIN
     Route: 048
  7. FISH OIL [Concomitant]
     Active Substance: FISH OIL
     Route: 048
  8. HYDRALAZINE [Concomitant]
     Active Substance: HYDRALAZINE HYDROCHLORIDE
     Dosage: 25 MG 1/2 TABLET PRN
  9. SILDENAFIL [Concomitant]
     Active Substance: SILDENAFIL
     Route: 048

REACTIONS (7)
  - Kidney infection [Not Recovered/Not Resolved]
  - Nephrolithiasis [Unknown]
  - Urinary tract infection [Recovering/Resolving]
  - Loss of consciousness [Unknown]
  - Blood pressure fluctuation [Unknown]
  - Laboratory test abnormal [Unknown]
  - Obstructive airways disorder [Unknown]

NARRATIVE: CASE EVENT DATE: 20230406
